FAERS Safety Report 25021140 (Version 1)
Quarter: 2025Q1

REPORT INFORMATION
  Report Type: Report from Study
  Country: US (occurrence: US)
  Receive Date: 20250228
  Receipt Date: 20250228
  Transmission Date: 20250408
  Serious: Yes (Other)
  Sender: AMNEAL
  Company Number: US-AMNEAL PHARMACEUTICALS-2025-AMRX-00666

PATIENT
  Sex: Male
  Weight: 66.84 kg

DRUGS (14)
  1. CARBIDOPA\LEVODOPA [Suspect]
     Active Substance: CARBIDOPA\LEVODOPA
     Indication: Parkinson^s disease
     Dosage: 48.75/195 MG, 3 CAPSULES, 3 /DAY
     Route: 048
  2. CARBIDOPA\LEVODOPA [Suspect]
     Active Substance: CARBIDOPA\LEVODOPA
     Dosage: 48.75/195 MG, 3 CAPSULES, 4 /DAY
     Route: 048
  3. ASPIRIN [Concomitant]
     Active Substance: ASPIRIN
     Indication: Product used for unknown indication
     Dosage: 2 TABLETS (81 MG), DAILY
     Route: 048
  4. MINERALS\VITAMINS [Concomitant]
     Active Substance: MINERALS\VITAMINS
     Indication: Product used for unknown indication
     Dosage: UNK, DAILY
     Route: 048
  5. CYCLOBENZAPRINE [Concomitant]
     Active Substance: CYCLOBENZAPRINE
     Indication: Product used for unknown indication
     Dosage: 10 MILLIGRAM TABLET, BID (PRN)
     Route: 048
  6. EZETIMIBE [Concomitant]
     Active Substance: EZETIMIBE
     Indication: Product used for unknown indication
     Dosage: 10MG, 1 TABLETS, DAILY
     Route: 048
  7. FOLIC ACID [Concomitant]
     Active Substance: FOLIC ACID
     Indication: Product used for unknown indication
     Dosage: 1MG, 1 TABLETS, DAILY
     Route: 048
  8. GAVISCON CHEWABLE [Concomitant]
     Indication: Product used for unknown indication
     Route: 048
  9. HALOPERIDOL [Concomitant]
     Active Substance: HALOPERIDOL
     Indication: Product used for unknown indication
     Dosage: 0.5 MG, 1 TABLETS, BID
     Route: 048
  10. HALOPERIDOL [Concomitant]
     Active Substance: HALOPERIDOL
     Route: 048
  11. HALOPERIDOL [Concomitant]
     Active Substance: HALOPERIDOL
     Dosage: 0.5 MG, 1 TABLETS, BID
     Route: 048
  12. NEXIUM I.V. [Concomitant]
     Active Substance: ESOMEPRAZOLE SODIUM
     Indication: Product used for unknown indication
     Dosage: 1 DOSAGE FORM (10 MG), DAILY
     Route: 048
  13. TESTOSTERONE CYPIONATE [Concomitant]
     Active Substance: TESTOSTERONE CYPIONATE
     Indication: Product used for unknown indication
     Dosage: 1 MILLILITER (100 MG/ML), EVERY 3 WEEKS
     Route: 030
  14. CYANOCOBALAMIN [Concomitant]
     Active Substance: CYANOCOBALAMIN
     Indication: Product used for unknown indication
     Dosage: 1 TABLETS (1000 MCG), DAILY
     Route: 048

REACTIONS (14)
  - Dystonia [Unknown]
  - Foot deformity [Unknown]
  - Gait disturbance [Unknown]
  - Weight increased [Unknown]
  - Resting tremor [Unknown]
  - Dysarthria [Unknown]
  - Reduced facial expression [Unknown]
  - Bradykinesia [Unknown]
  - Tremor [Unknown]
  - Distractibility [Unknown]
  - Dysstasia [Unknown]
  - Hypokinesia [Unknown]
  - Muscle rigidity [Unknown]
  - On and off phenomenon [Unknown]
